FAERS Safety Report 11815466 (Version 2)
Quarter: 2016Q1

REPORT INFORMATION
  Report Type: Report from Study
  Country: CA (occurrence: CA)
  Receive Date: 20151209
  Receipt Date: 20160121
  Transmission Date: 20160525
  Serious: Yes (Death)
  Sender: FDA-Public Use
  Company Number: CA-MYLANLABS-2015M1042837

PATIENT

DRUGS (4)
  1. RESTORIL                           /00393701/ [Concomitant]
     Dosage: 30 MG, HS
  2. RISPERDAL [Concomitant]
     Active Substance: RISPERIDONE
     Dosage: 2 MG, TID
  3. LAMICTAL [Concomitant]
     Active Substance: LAMOTRIGINE
     Dosage: 100 MG, UNK
  4. GEN-CLOZAPINE [Suspect]
     Active Substance: CLOZAPINE
     Dosage: 200 MG, QD
     Route: 048
     Dates: start: 20100916, end: 20151027

REACTIONS (3)
  - Cardio-respiratory arrest [Fatal]
  - Choking [Fatal]
  - Myocardial infarction [Fatal]

NARRATIVE: CASE EVENT DATE: 20151028
